FAERS Safety Report 6222151-1 (Version None)
Quarter: 2009Q2

REPORT INFORMATION
  Report Type: 
  Country: None (occurrence: None)
  Receive Date: 20090609
  Receipt Date: 20090526
  Transmission Date: 20091009
  Serious: Yes (Other)
  Sender: FDA-Public Use
  Company Number: TRP_06250_2009

PATIENT
  Age: 45 Year
  Sex: Female

DRUGS (4)
  1. RIBASPHERE [Suspect]
     Indication: HEPATITIS C
     Dosage: DF, DF
     Dates: start: 20090503, end: 20090504
  2. RIBASPHERE [Suspect]
     Indication: HEPATITIS C
     Dosage: DF, DF
     Dates: start: 20090511
  3. PEG-INTRON [Suspect]
     Indication: HEPATITIS C
     Dosage: DF SUBCUTANEOUS, DF SUBCUTANEOUS
     Route: 058
     Dates: start: 20090503, end: 20090504
  4. PEG-INTRON [Suspect]
     Indication: HEPATITIS C
     Dosage: DF SUBCUTANEOUS, DF SUBCUTANEOUS
     Route: 058
     Dates: start: 20090510

REACTIONS (4)
  - ASTHMA [None]
  - DEHYDRATION [None]
  - HAEMORRHAGIC DIATHESIS [None]
  - INJECTION SITE PAIN [None]
